FAERS Safety Report 6831589-0 (Version None)
Quarter: 2010Q3

REPORT INFORMATION
  Report Type: 
  Country: None (occurrence: None)
  Receive Date: 20100712
  Receipt Date: 20100629
  Transmission Date: 20110219
  Serious: Yes (Hospitalization)
  Sender: FDA-Public Use
  Company Number: PHHY2010NZ42980

PATIENT
  Sex: Male

DRUGS (1)
  1. ACLASTA [Suspect]

REACTIONS (2)
  - CHOLELITHIASIS [None]
  - SURGERY [None]
